FAERS Safety Report 8833966 (Version 2)
Quarter: 2013Q1

REPORT INFORMATION
  Report Type: Spontaneous
  Country: US (occurrence: US)
  Receive Date: 20121010
  Receipt Date: 20130119
  Transmission Date: 20140127
  Serious: No
  Sender: FDA-Public Use
  Company Number: US-009507513-1209USA010503

PATIENT
  Sex: Female

DRUGS (1)
  1. PROVENTIL [Suspect]
     Indication: HYPERSENSITIVITY
     Dosage: UNK
     Dates: start: 2007

REACTIONS (3)
  - Device malfunction [Unknown]
  - Drug dose omission [Unknown]
  - No adverse event [Unknown]
